FAERS Safety Report 7502734-9 (Version None)
Quarter: 2011Q2

REPORT INFORMATION
  Report Type: 
  Country: None (occurrence: None)
  Receive Date: 20110518
  Receipt Date: 20110502
  Transmission Date: 20111010
  Serious: Yes (Other)
  Sender: FDA-Public Use
  Company Number: 2011P1005259

PATIENT
  Age: 12 Year
  Sex: Male
  Weight: 43 kg

DRUGS (14)
  1. CLONZAEPAM [Concomitant]
  2. LACTULOSE [Concomitant]
  3. BICARBONATE [Concomitant]
  4. SODIUM BENZOATE [Concomitant]
  5. AMMONUL [Suspect]
     Indication: CARBAMOYL PHOSPHATE SYNTHETASE DEFICIENCY
     Dosage: 250 MG/KG;QD;IV
     Route: 042
     Dates: start: 20110428, end: 20110430
  6. ALVESCO [Concomitant]
  7. CITRULLINE [Concomitant]
  8. L-CARNITINE [Concomitant]
  9. PHENYLBUTYRATE [Concomitant]
  10. KEPPRA [Concomitant]
  11. AMMONUL [Concomitant]
  12. GLYCOPYRROLATE [Concomitant]
  13. PREVACID [Concomitant]
  14. TOPAMAX [Concomitant]

REACTIONS (3)
  - CATHETER SITE RELATED REACTION [None]
  - AGITATION [None]
  - BURNING SENSATION [None]
